FAERS Safety Report 25561537 (Version 1)
Quarter: 2025Q3

REPORT INFORMATION
  Report Type: Spontaneous
  Country: US (occurrence: US)
  Receive Date: 20250716
  Receipt Date: 20250716
  Transmission Date: 20251021
  Serious: Yes (Other)
  Sender: GLAXOSMITHKLINE
  Company Number: US-GSK-US2025AMR089402

PATIENT
  Sex: Female

DRUGS (4)
  1. LAMICTAL [Suspect]
     Active Substance: LAMOTRIGINE
     Indication: Product used for unknown indication
  2. FYCOMPA [Suspect]
     Active Substance: PERAMPANEL
     Indication: Epilepsy
  3. KEPPRA [Suspect]
     Active Substance: LEVETIRACETAM
     Indication: Product used for unknown indication
  4. XCOPRI [Suspect]
     Active Substance: CENOBAMATE
     Indication: Product used for unknown indication

REACTIONS (9)
  - Suicidal ideation [Unknown]
  - Feeling drunk [Unknown]
  - Fatigue [Unknown]
  - Cognitive disorder [Unknown]
  - Emotional disorder [Unknown]
  - Anger [Unknown]
  - Crying [Unknown]
  - Aphasia [Unknown]
  - Drug ineffective [Unknown]
